FAERS Safety Report 5631508-9 (Version None)
Quarter: 2008Q1

REPORT INFORMATION
  Report Type: 
  Country: None (occurrence: None)
  Receive Date: 20080215
  Receipt Date: 20080130
  Transmission Date: 20080703
  Serious: Yes (Life-Threatening, Hospitalization, Other)
  Sender: FDA-Public Use
  Company Number: TRP_0878_2006

PATIENT
  Sex: Female
  Weight: 63.5036 kg

DRUGS (15)
  1. RIBASPHERE [Suspect]
     Indication: HEPATITIS C
     Dosage: (1200 MG QD ORAL)
     Route: 048
     Dates: start: 20060626, end: 20060905
  2. PEGASYS [Suspect]
     Indication: HEPATITIS C
     Dosage: (180 UG 1X/WEEK SUBCUTANEOUS)
     Route: 058
     Dates: start: 20060626, end: 20060101
  3. RIBASPHERE [Suspect]
     Indication: HEPATITIS C
     Dosage: (600 MG QD ORAL)
     Route: 048
     Dates: start: 20060906, end: 20060911
  4. RIBASPHERE [Suspect]
     Indication: HEPATITIS C
     Dosage: (300 MG QD ORAL)
     Route: 048
     Dates: start: 20061004, end: 20061019
  5. RIBASPHERE [Suspect]
     Indication: HEPATITIS C
     Dosage: (100 MG QD ORAL)
     Route: 048
     Dates: start: 20061019
  6. PEGASYS [Suspect]
     Indication: HEPATITIS C
     Dosage: (180 US 1X/WEEK SUBCUTANEOUS)
     Route: 058
     Dates: start: 20061201
  7. PEGASYS [Suspect]
     Indication: HEPATITIS C
     Dosage: (135 UG 1X/WEEK SUBCUTANEOUS)
     Route: 058
     Dates: start: 20070101, end: 20070201
  8. RIBASPHERE [Suspect]
     Indication: HEPATITIS C
     Dosage: (400 MG QD ORAL)
     Route: 048
     Dates: start: 20070221, end: 20070301
  9. PEGASYS [Suspect]
     Indication: HEPATITIS C
     Dosage: (135 UG 1X/WEEK SUBCUTANEOUS)
     Route: 058
     Dates: start: 20070221
  10. RIBASPHERE [Suspect]
     Indication: HEPATITIS C
     Dosage: (2 TABLETS IN THE MORNING AND 1 TABLET AT NIGHT ORAL)
     Route: 048
     Dates: start: 20070315
  11. PROZAC [Concomitant]
  12. MIRTAZAPINE [Concomitant]
  13. QUETIAPINE FUMARATE [Concomitant]
  14. RITALIN [Concomitant]
  15. SYNTHROID [Concomitant]

REACTIONS (17)
  - ASTHENIA [None]
  - BLOOD GLUCOSE INCREASED [None]
  - CONSTIPATION [None]
  - COUGH [None]
  - DIZZINESS [None]
  - DRY SKIN [None]
  - DYSPNOEA [None]
  - FATIGUE [None]
  - GASTROOESOPHAGEAL REFLUX DISEASE [None]
  - HAEMOLYTIC ANAEMIA [None]
  - MAJOR DEPRESSION [None]
  - MEAN CELL VOLUME INCREASED [None]
  - PAROTITIS [None]
  - PLATELET COUNT INCREASED [None]
  - SIALOADENITIS [None]
  - SUICIDAL IDEATION [None]
  - THYROID FUNCTION TEST ABNORMAL [None]
